FAERS Safety Report 5233912-X (Version None)
Quarter: 2007Q1

REPORT INFORMATION
  Report Type: 
  Country: None (occurrence: None)
  Receive Date: 20070208
  Receipt Date: 20060120
  Transmission Date: 20070707
  Serious: Yes (Hospitalization)
  Sender: FDA-Public Use
  Company Number: US-BRISTOL-MYERS SQUIBB COMPANY-13258892

PATIENT
  Age: 81 Year
  Sex: Female

DRUGS (1)
  1. AZACTAM [Suspect]
     Indication: SEPSIS
     Dates: start: 20060101

REACTIONS (2)
  - RASH GENERALISED [None]
  - SKIN EXFOLIATION [None]
